FAERS Safety Report 11248829 (Version 1)
Quarter: 2015Q3

REPORT INFORMATION
  Report Type: Spontaneous
  Country: US (occurrence: US)
  Receive Date: 20150708
  Receipt Date: 20150708
  Transmission Date: 20151125
  Serious: No
  Sender: FDA-Public Use
  Company Number: US-ELI_LILLY_AND_COMPANY-US201007004137

PATIENT
  Age: 76 Year
  Sex: Female

DRUGS (1)
  1. PROZAC [Suspect]
     Active Substance: FLUOXETINE HYDROCHLORIDE
     Indication: DEPRESSION
     Dosage: 20 MG, DAILY (1/D)

REACTIONS (6)
  - Intentional product use issue [Unknown]
  - Nervousness [Unknown]
  - Agitation [Unknown]
  - Mycobacterium avium complex infection [Unknown]
  - Dysphonia [Recovered/Resolved]
  - Insomnia [Unknown]
